FAERS Safety Report 5452619-7 (Version None)
Quarter: 2007Q3

REPORT INFORMATION
  Report Type: 
  Country: None (occurrence: None)
  Receive Date: 20070914
  Receipt Date: 20070905
  Transmission Date: 20080115
  Serious: Yes (Death)
  Sender: FDA-Public Use
  Company Number: JP-BRISTOL-MYERS SQUIBB COMPANY-13773262

PATIENT
  Age: 16 Year
  Sex: Female

DRUGS (4)
  1. ARIPIPRAZOLE [Suspect]
     Indication: SCHIZOPHRENIA
     Dosage: DOSE INCREASED TO 12 MG ON 05-APR-2007
     Route: 048
     Dates: start: 20070402, end: 20070410
  2. CHLORPROMAZINE [Suspect]
     Indication: SEDATION
     Dosage: DOSE INCREASED TO 50 MG/DAY ON 10-APR-2007
     Route: 048
     Dates: start: 20070405, end: 20070410
  3. ZOPICLONE [Concomitant]
     Indication: INSOMNIA
     Dosage: ON 7.5 MG FROM 02-APR-07 TO 04-APR-07; THEN 7.5 MG FROM 10-APR-07 TO 10-APR-07
     Route: 048
     Dates: start: 20070402, end: 20070410
  4. LORAZEPAM [Concomitant]
     Indication: ANXIETY
     Route: 048
     Dates: start: 20070402, end: 20070410

REACTIONS (4)
  - CARDIO-RESPIRATORY ARREST [None]
  - CEREBRAL DISORDER [None]
  - MALFORMATION VENOUS [None]
  - SUDDEN DEATH [None]
